FAERS Safety Report 11373895 (Version 1)
Quarter: 2015Q3

REPORT INFORMATION
  Report Type: Spontaneous
  Country: US (occurrence: US)
  Receive Date: 20150811
  Receipt Date: 20150811
  Transmission Date: 20151125
  Serious: No
  Sender: FDA-Public Use
  Company Number: US-ELI_LILLY_AND_COMPANY-US201110000956

PATIENT
  Age: 80 Year
  Sex: Male

DRUGS (3)
  1. CIALIS [Suspect]
     Active Substance: TADALAFIL
     Indication: ERECTILE DYSFUNCTION
     Dosage: 5 MG, PRN
  2. VIAGRA [Concomitant]
     Active Substance: SILDENAFIL CITRATE
  3. CIALIS [Suspect]
     Active Substance: TADALAFIL
     Dosage: 20 MG, PRN
     Dates: start: 201109

REACTIONS (3)
  - Underdose [Unknown]
  - Drug ineffective [Unknown]
  - Drug prescribing error [Recovered/Resolved]
